FAERS Safety Report 5740851-4 (Version None)
Quarter: 2008Q2

REPORT INFORMATION
  Report Type: 
  Country: None (occurrence: None)
  Receive Date: 20080516
  Receipt Date: 20080506
  Transmission Date: 20081010
  Serious: Yes (Death, Hospitalization, Other)
  Sender: FDA-Public Use
  Company Number: US-PFIZER INC-2008014527

PATIENT
  Sex: Female
  Weight: 61 kg

DRUGS (20)
  1. SUTENT [Suspect]
     Indication: METASTATIC RENAL CELL CARCINOMA
     Route: 048
     Dates: start: 20071221, end: 20080119
  2. FERROUS SULFATE TAB [Concomitant]
     Dosage: TEXT:325-FREQ:DAILY
  3. VALIUM [Concomitant]
     Dates: start: 20071201, end: 20080101
  4. NORCO [Concomitant]
     Dosage: FREQ:EVERY 4-6 HOURS
  5. WARFARIN SODIUM [Concomitant]
  6. MEVACOR [Concomitant]
  7. ALLEGRA D 24 HOUR [Concomitant]
     Dosage: FREQ:EVERY 12 HOURS
  8. PLAVIX [Concomitant]
     Dates: start: 20071201, end: 20080101
  9. IMDUR [Concomitant]
  10. MAXZIDE [Concomitant]
     Dosage: TEXT:50 MG - 75 MG
     Dates: start: 20071201, end: 20080101
  11. FOSAMAX [Concomitant]
     Dates: start: 20071201, end: 20080101
  12. VISTARIL [Concomitant]
  13. NITROSTAT [Concomitant]
     Route: 060
  14. COMBIVENT [Concomitant]
     Dosage: TEXT:103 MCG - 18 MCG 2 PUFFS
     Dates: start: 20071201, end: 20080101
  15. BECONASE AQUA [Concomitant]
  16. TENORETIC 100 [Concomitant]
     Route: 048
     Dates: start: 20071201, end: 20080101
  17. FLEXERIL [Concomitant]
     Route: 048
     Dates: start: 20071201, end: 20080101
  18. DARVOCET [Concomitant]
  19. COUMADIN [Concomitant]
  20. ALL OTHER THERAPEUTIC PRODUCTS [Concomitant]

REACTIONS (16)
  - BLOOD GLUCOSE INCREASED [None]
  - CONFUSIONAL STATE [None]
  - DECREASED APPETITE [None]
  - DEHYDRATION [None]
  - DIARRHOEA [None]
  - DISEASE PROGRESSION [None]
  - FATIGUE [None]
  - GASTROENTERITIS [None]
  - HYPOGLYCAEMIC COMA [None]
  - LETHARGY [None]
  - MALAISE [None]
  - METASTATIC RENAL CELL CARCINOMA [None]
  - NAUSEA [None]
  - PANCYTOPENIA [None]
  - RENAL FAILURE ACUTE [None]
  - VOMITING [None]
